FAERS Safety Report 6840642-7 (Version None)
Quarter: 2010Q3

REPORT INFORMATION
  Report Type: 
  Country: None (occurrence: None)
  Receive Date: 20100713
  Receipt Date: 20100713
  Transmission Date: 20110219
  Serious: Yes (Life-Threatening, Other)
  Sender: FDA-Public Use
  Company Number: None

PATIENT
  Sex: Male
  Weight: 117.9352 kg

DRUGS (1)
  1. ATENOLOL [Suspect]
     Indication: HYPERTENSION
     Dosage: 50MG 1 A DAY PO
     Route: 048
     Dates: start: 20100704, end: 20100710

REACTIONS (5)
  - BLOOD PRESSURE INCREASED [None]
  - EXPIRED DRUG ADMINISTERED [None]
  - PRODUCT ODOUR ABNORMAL [None]
  - PRODUCT SUBSTITUTION ISSUE [None]
  - WRONG DRUG ADMINISTERED [None]
